FAERS Safety Report 23358592 (Version 1)
Quarter: 2024Q1

REPORT INFORMATION
  Report Type: Spontaneous
  Country: None (occurrence: IT)
  Receive Date: 20240102
  Receipt Date: 20240102
  Transmission Date: 20240409
  Serious: Yes (Other)
  Sender: FDA-Public Use
  Company Number: IT-B.Braun Medical Inc.-2150059

PATIENT
  Age: 29 Year
  Sex: Female
  Weight: 42 kg

DRUGS (1)
  1. METRONIDAZOLE [Suspect]
     Active Substance: METRONIDAZOLE
     Indication: Flushing

REACTIONS (6)
  - Skin burning sensation [None]
  - Hot flush [None]
  - Flushing [None]
  - Pruritus [None]
  - Dry skin [None]
  - Drug ineffective for unapproved indication [None]
